FAERS Safety Report 6410827 (Version 2)
Quarter: 2013Q3

REPORT INFORMATION
  Report Type: Spontaneous
  Country: PL (occurrence: None)
  Receive Date: 20070830
  Receipt Date: 20130723
  Transmission Date: 20140515
  Serious: Yes (Hospitalization, Other)
  Sender: FDA-Public Use
  Company Number: 2007US-09369

PATIENT
  Age: 15 Year
  Sex: Female

DRUGS (1)
  1. VERAPAMIL (VERAPAMIL) [Suspect]
     Indication: PRODUCT USED FOR UNKNOWN INDICATION
     Dosage: 70, ORAL
     Route: 048

REACTIONS (16)
  - Metabolic acidosis [None]
  - Loss of consciousness [None]
  - Bradycardia [None]
  - Hypotension [None]
  - Arrhythmia [None]
  - Hypokalaemia [None]
  - Pulse absent [None]
  - Body temperature decreased [None]
  - Ventricular arrhythmia [None]
  - Echocardiogram abnormal [None]
  - Cardiac output increased [None]
  - Toxicity to various agents [None]
  - Vascular resistance systemic decreased [None]
  - Intentional overdose [None]
  - Hyperglycaemia [None]
  - Arrhythmia supraventricular [None]
